FAERS Safety Report 5697609-4 (Version None)
Quarter: 2008Q2

REPORT INFORMATION
  Report Type: 
  Country: None (occurrence: None)
  Receive Date: 20080408
  Receipt Date: 20080328
  Transmission Date: 20081010
  Serious: Yes (Disabling)
  Sender: FDA-Public Use
  Company Number: US-ROCHE-452327

PATIENT
  Sex: Female
  Weight: 72.6 kg

DRUGS (3)
  1. BONIVA [Suspect]
     Indication: OSTEOPOROSIS
     Dosage: OTHER INDICATION SCOLIOSIS
     Route: 048
     Dates: start: 20060529, end: 20060729
  2. CALCIUM [Concomitant]
  3. VITAMIN D [Concomitant]

REACTIONS (7)
  - ASTHENIA [None]
  - BACK PAIN [None]
  - INSOMNIA [None]
  - MICTURITION URGENCY [None]
  - MUSCULOSKELETAL DISORDER [None]
  - MYALGIA [None]
  - WEIGHT DECREASED [None]
